FAERS Safety Report 11191584 (Version 1)
Quarter: 2015Q2

REPORT INFORMATION
  Report Type: Spontaneous
  Country: IT (occurrence: IT)
  Receive Date: 20150616
  Receipt Date: 20150616
  Transmission Date: 20150821
  Serious: Yes (Hospitalization, Other)
  Sender: FDA-Public Use
  Company Number: PHHY2015IT067752

PATIENT
  Age: 58 Year
  Sex: Female

DRUGS (7)
  1. LYSINE ACETYLSALICYLATE [Concomitant]
     Active Substance: ASPIRIN LYSINE
     Indication: ARTERIOSCLEROSIS
  2. LEVOTHYROXINE [Concomitant]
     Active Substance: LEVOTHYROXINE
     Indication: EUTHYROID SICK SYNDROME
     Route: 065
  3. ROSUVASTATIN [Interacting]
     Active Substance: ROSUVASTATIN
     Indication: ARTERIOSCLEROSIS
  4. METHYLPREDNISOLONE. [Interacting]
     Active Substance: METHYLPREDNISOLONE
     Dosage: 250 MG, UNK
     Route: 041
  5. ROSUVASTATIN [Interacting]
     Active Substance: ROSUVASTATIN
     Indication: TRANSIENT ISCHAEMIC ATTACK
     Dosage: 20 MG/DL, UNK
     Route: 065
  6. METHYLPREDNISOLONE. [Suspect]
     Active Substance: METHYLPREDNISOLONE
     Indication: IMMUNOSUPPRESSION
     Dosage: 500 MG, UNK
     Route: 041
  7. LYSINE ACETYLSALICYLATE [Concomitant]
     Active Substance: ASPIRIN LYSINE
     Indication: TRANSIENT ISCHAEMIC ATTACK
     Dosage: 160 MG/DL, UNK
     Route: 065

REACTIONS (4)
  - Hepatitis toxic [Recovering/Resolving]
  - Hepatic steatosis [Recovering/Resolving]
  - Leukopenia [Recovering/Resolving]
  - Drug interaction [Recovering/Resolving]
